FAERS Safety Report 6730864-8 (Version None)
Quarter: 2010Q2

REPORT INFORMATION
  Report Type: 
  Country: None (occurrence: None)
  Receive Date: 20100518
  Receipt Date: 20100505
  Transmission Date: 20101027
  Serious: Yes (Other)
  Sender: FDA-Public Use
  Company Number: PHHY2010US29144

PATIENT
  Sex: Male
  Weight: 95 kg

DRUGS (5)
  1. EXJADE [Suspect]
     Indication: MYELODYSPLASTIC SYNDROME
     Dosage: 1750 MG, DAILY
     Route: 048
     Dates: start: 20100422
  2. SIMVASTATIN [Concomitant]
  3. LASIX [Concomitant]
  4. ASPIRIN [Concomitant]
     Dosage: UNK
  5. PROCHLORPERAZINE [Concomitant]

REACTIONS (5)
  - ASTHENIA [None]
  - BODY TEMPERATURE INCREASED [None]
  - GAIT DISTURBANCE [None]
  - HAEMOGLOBIN DECREASED [None]
  - INSOMNIA [None]
